FAERS Safety Report 4984772-3 (Version None)
Quarter: 2006Q2

REPORT INFORMATION
  Report Type: 
  Country: None (occurrence: None)
  Receive Date: 20060427
  Receipt Date: 20051208
  Transmission Date: 20061013
  Serious: Yes (Death, Hospitalization)
  Sender: FDA-Public Use
  Company Number: US-MERCK-0512USA01298

PATIENT
  Age: 71 Year
  Sex: Male
  Weight: 82 kg

DRUGS (5)
  1. VIOXX [Suspect]
     Indication: ARTHRITIS
     Route: 048
     Dates: start: 20011204, end: 20031208
  2. PEPCID [Concomitant]
     Indication: PEPTIC ULCER
     Route: 065
  3. ZESTRIL [Concomitant]
     Indication: HYPERTENSION
     Route: 065
  4. CALAN [Concomitant]
     Indication: HYPERTENSION
     Route: 065
  5. MEVACOR [Concomitant]
     Indication: DYSLIPIDAEMIA
     Route: 065

REACTIONS (13)
  - ARTERIOSCLEROSIS [None]
  - BACK PAIN [None]
  - CARDIAC ARREST [None]
  - CARDIAC MURMUR [None]
  - CAROTID BRUIT [None]
  - CORONARY ARTERY DISEASE [None]
  - DUPUYTREN'S CONTRACTURE [None]
  - DYSLIPIDAEMIA [None]
  - HYPERTENSION [None]
  - HYPERTENSIVE HEART DISEASE [None]
  - OSTEOARTHRITIS [None]
  - PEPTIC ULCER [None]
  - PEYRONIE'S DISEASE [None]
